FAERS Safety Report 18846574 (Version 3)
Quarter: 2021Q1

REPORT INFORMATION
  Report Type: Spontaneous
  Country: JP (occurrence: JP)
  Receive Date: 20210204
  Receipt Date: 20210224
  Transmission Date: 20210419
  Serious: Yes (Death, Other)
  Sender: FDA-Public Use
  Company Number: JP-ROCHE-2761115

PATIENT
  Age: 92 Year
  Sex: Male
  Weight: 56 kg

DRUGS (5)
  1. LEVOFLOXACIN HEMIHYDRATE [Concomitant]
     Active Substance: LEVOFLOXACIN
     Dosage: DOSAGE IS UNCERTAIN.
     Route: 065
  2. ACTEMRA [Suspect]
     Active Substance: TOCILIZUMAB
     Dosage: THE DOSE OF 10% AND 60% OF TOCILIZUMAB WERE ADMINISTERED FOR ONE HOUR AND FOUR TO FIVE HOURS RESPECT
     Route: 041
     Dates: start: 20210128
  3. BISOPROLOL [Concomitant]
     Active Substance: BISOPROLOL
     Dosage: DOSAGE IS UNCERTAIN.
     Route: 048
  4. ACTEMRA [Suspect]
     Active Substance: TOCILIZUMAB
     Indication: COVID-19
     Dosage: DOSAGE IS UNCERTAIN.
     Route: 041
     Dates: start: 20210127, end: 20210127
  5. MEROPEN [Concomitant]
     Active Substance: MEROPENEM
     Dosage: DOSAGE IS UNCERTAIN.
     Route: 065

REACTIONS (7)
  - Off label use [Unknown]
  - Intentional product use issue [Unknown]
  - Blood pressure decreased [Recovering/Resolving]
  - Heart rate decreased [Recovering/Resolving]
  - Infusion related reaction [Fatal]
  - Anaphylactic reaction [Fatal]
  - COVID-19 [Fatal]

NARRATIVE: CASE EVENT DATE: 20210127
